FAERS Safety Report 6947522-7 (Version None)
Quarter: 2010Q3

REPORT INFORMATION
  Report Type: 
  Country: None (occurrence: None)
  Receive Date: 20100827
  Receipt Date: 20090915
  Transmission Date: 20110219
  Serious: No
  Sender: FDA-Public Use
  Company Number: US-ABBOTT-09P-163-0598179-00

PATIENT
  Sex: Male
  Weight: 99.88 kg

DRUGS (8)
  1. NIASPAN [Suspect]
     Indication: BLOOD CHOLESTEROL INCREASED
     Route: 048
     Dates: start: 20090501, end: 20090501
  2. CRESTOR [Concomitant]
     Indication: BLOOD CHOLESTEROL INCREASED
     Route: 048
  3. TRICOR [Concomitant]
     Indication: BLOOD CHOLESTEROL INCREASED
  4. LOVASA [Concomitant]
     Indication: BLOOD CHOLESTEROL INCREASED
  5. BYSTOLIC [Concomitant]
     Indication: HYPERTENSION
  6. MICARDIN [Concomitant]
     Indication: HYPERTENSION
  7. SYNTHROID [Concomitant]
     Indication: HYPOTHYROIDISM
  8. AVODART [Concomitant]
     Indication: PRODUCT USED FOR UNKNOWN INDICATION

REACTIONS (1)
  - FLUSHING [None]
